FAERS Safety Report 13266724 (Version 1)
Quarter: 2017Q1

REPORT INFORMATION
  Report Type: Report from Study
  Country: IT (occurrence: IT)
  Receive Date: 20170224
  Receipt Date: 20170224
  Transmission Date: 20170428
  Serious: Yes (Hospitalization, Other)
  Sender: FDA-Public Use
  Company Number: IT-ROCHE-1895383

PATIENT

DRUGS (3)
  1. RIBAVIRIN. [Suspect]
     Active Substance: RIBAVIRIN
     Indication: HEPATITIS C
     Route: 065
  2. SIMEPREVIR [Suspect]
     Active Substance: SIMEPREVIR
     Indication: HEPATITIS C
     Route: 048
  3. SOFOSBUVIR [Suspect]
     Active Substance: SOFOSBUVIR
     Indication: HEPATITIS C
     Route: 048

REACTIONS (14)
  - Hyperbilirubinaemia [Unknown]
  - Rash [Unknown]
  - Fatigue [Unknown]
  - Gastrointestinal haemorrhage [Unknown]
  - Headache [Unknown]
  - Gastrointestinal disorder [Unknown]
  - Pruritus [Unknown]
  - Anaemia [Unknown]
  - Insomnia [Unknown]
  - Biliary colic [Unknown]
  - Thrombocytopenia [Unknown]
  - Affective disorder [Unknown]
  - Photosensitivity reaction [Unknown]
  - Dizziness [Unknown]
